FAERS Safety Report 7439622-2 (Version None)
Quarter: 2011Q2

REPORT INFORMATION
  Report Type: 
  Country: None (occurrence: None)
  Receive Date: 20110427
  Receipt Date: 20110405
  Transmission Date: 20111010
  Serious: No
  Sender: FDA-Public Use
  Company Number: US-B.I. PHARMACEUTICALS,INC./RIDGEFIELD-2011-BP-10222BP

PATIENT
  Sex: Female

DRUGS (6)
  1. LORATADINE [Concomitant]
     Indication: ASTHMA
     Route: 048
  2. SPIRIVA [Suspect]
     Dosage: 18 MCG
     Route: 055
  3. SINGULAIR [Concomitant]
     Indication: ASTHMA
     Route: 055
  4. MICARDIS [Concomitant]
     Indication: HYPERTENSION
     Dosage: 80 MG
     Route: 048
     Dates: start: 20070101
  5. EPIPEN [Concomitant]
     Indication: HYPERSENSITIVITY
  6. ADVAIR DISKUS 100/50 [Concomitant]
     Indication: ASTHMA
     Route: 055

REACTIONS (2)
  - DYSPNOEA [None]
  - FATIGUE [None]
